FAERS Safety Report 9741625 (Version 1)
Quarter: 2013Q4

REPORT INFORMATION
  Report Type: Spontaneous
  Country: US (occurrence: US)
  Receive Date: 20131210
  Receipt Date: 20131210
  Transmission Date: 20140711
  Serious: No
  Sender: FDA-Public Use
  Company Number: US-BIOGENIDEC-2013BI117346

PATIENT
  Age: 68 Year
  Sex: Male

DRUGS (7)
  1. AVONEX [Suspect]
     Indication: MULTIPLE SCLEROSIS
     Route: 030
     Dates: start: 20130221
  2. CALCIUM 600+D HIGH POTENCY [Concomitant]
  3. CENTRUM SILVER ULTRA MENS [Concomitant]
  4. FOSAMAX [Concomitant]
  5. MEDROL [Concomitant]
  6. METFORMIN HCL [Concomitant]
  7. NAPROXEN [Concomitant]

REACTIONS (2)
  - Tremor [Unknown]
  - Headache [Unknown]
